FAERS Safety Report 13254000 (Version 2)
Quarter: 2017Q2

REPORT INFORMATION
  Report Type: Spontaneous
  Country: DE (occurrence: DE)
  Receive Date: 20170220
  Receipt Date: 20170615
  Transmission Date: 20170830
  Serious: Yes (Life-Threatening, Hospitalization, Other)
  Sender: FDA-Public Use
  Company Number: DE-MYLANLABS-2017M1010254

PATIENT

DRUGS (3)
  1. AZATHIOPRINE. [Suspect]
     Active Substance: AZATHIOPRINE
     Indication: AUTOIMMUNE HEPATITIS
     Dosage: 50 MG, UNK
     Dates: start: 20161123, end: 20161130
  2. BUDESONID [Concomitant]
     Active Substance: BUDESONIDE
     Dates: start: 20161123, end: 20161223
  3. AZATHIOPRINE. [Suspect]
     Active Substance: AZATHIOPRINE
     Dosage: 150 MG, UNK
     Dates: start: 20161130, end: 20161223

REACTIONS (3)
  - Blood product transfusion dependent [Recovered/Resolved]
  - Sepsis [Recovered/Resolved]
  - Pancytopenia [Recovered/Resolved]

NARRATIVE: CASE EVENT DATE: 20161229
